FAERS Safety Report 18861953 (Version 1)
Quarter: 2021Q1

REPORT INFORMATION
  Report Type: Spontaneous
  Country: US (occurrence: US)
  Receive Date: 20210209
  Receipt Date: 20210209
  Transmission Date: 20210420
  Serious: Yes (Other)
  Sender: FDA-Public Use
  Company Number: US-CELLTRION INC.-2021US001438

PATIENT

DRUGS (6)
  1. MANNITOL. [Concomitant]
     Active Substance: MANNITOL
     Indication: PROPHYLAXIS
  2. RITUXIMAB (UNKNOWN) [Suspect]
     Active Substance: RITUXIMAB
     Indication: GLOMERULONEPHRITIS RAPIDLY PROGRESSIVE
     Dosage: UNK (FIRST DOSE), AS INDUCTION THERAPY
  3. METHYLPREDNISOLONE. [Suspect]
     Active Substance: METHYLPREDNISOLONE
     Indication: GLOMERULONEPHRITIS RAPIDLY PROGRESSIVE
     Dosage: 500 MG BOLUSES (HIGH DOSE), AS INDUCTION THERAPY
  4. MANNITOL. [Concomitant]
     Active Substance: MANNITOL
     Indication: DIALYSIS DISEQUILIBRIUM SYNDROME
  5. RITUXIMAB (UNKNOWN) [Suspect]
     Active Substance: RITUXIMAB
     Indication: IMMUNOSUPPRESSION
  6. PREDNISONE. [Suspect]
     Active Substance: PREDNISONE
     Indication: GLOMERULONEPHRITIS RAPIDLY PROGRESSIVE
     Dosage: 50 MG/DAY, AS INDUCTION THERAPY

REACTIONS (4)
  - Drug ineffective for unapproved indication [Unknown]
  - End stage renal disease [Unknown]
  - Off label use [Unknown]
  - Therapy interrupted [Unknown]
